FAERS Safety Report 4798369-1 (Version None)
Quarter: 2005Q4

REPORT INFORMATION
  Report Type: 
  Country: None (occurrence: None)
  Receive Date: 20051014
  Receipt Date: 20051007
  Transmission Date: 20060501
  Serious: Yes (Other)
  Sender: FDA-Public Use
  Company Number: PHNU2005DE03392

PATIENT
  Sex: Female

DRUGS (1)
  1. AREDIA [Suspect]
     Indication: PLASMACYTOMA
     Dosage: 75 MG IN 1000 ML SALINE SOLUTION, UNK
     Route: 042
     Dates: end: 20050822

REACTIONS (2)
  - ABSCESS JAW [None]
  - OSTEONECROSIS [None]
